FAERS Safety Report 7906930-8 (Version None)
Quarter: 2011Q4

REPORT INFORMATION
  Report Type: 
  Country: None (occurrence: None)
  Receive Date: 20111110
  Receipt Date: 20111104
  Transmission Date: 20120403
  Serious: Yes (Death, Other)
  Sender: FDA-Public Use
  Company Number: CO-PFIZER INC-2011207015

PATIENT
  Age: 64 Year
  Sex: Female

DRUGS (8)
  1. VFEND [Suspect]
     Dosage: 200 MG, 2X/DAY
     Route: 042
     Dates: start: 20110818, end: 20110826
  2. AMIODARONE [Concomitant]
     Indication: TACHYCARDIA
     Dosage: UNK
     Dates: start: 20110815
  3. FUROSEMIDE [Concomitant]
     Indication: POLYURIA
     Dosage: 70 MG, 3X/DAY
     Route: 042
     Dates: start: 20110823, end: 20110824
  4. ENALAPRIL [Concomitant]
     Indication: HYPERTENSION
     Dosage: UNK
     Dates: start: 20110818
  5. VFEND [Suspect]
     Indication: ASPERGILLOSIS
     Dosage: 200 MG, 2X/DAY
     Route: 048
     Dates: start: 20110813, end: 20110818
  6. IPRATROPIUM BROMIDE AND ALBUTEROL SULFATE [Concomitant]
     Indication: CHRONIC OBSTRUCTIVE PULMONARY DISEASE
     Dosage: UNK
     Dates: start: 20110805
  7. CASPOFUNGIN [Concomitant]
     Indication: INFECTION
     Dosage: 50 MG, 1X/DAY
     Route: 042
     Dates: start: 20110820, end: 20110824
  8. DIPIRONE [Concomitant]
     Indication: PAIN
     Dosage: 1 G, 3X/DAY
     Route: 042
     Dates: start: 20110821, end: 20110824

REACTIONS (3)
  - ASPARTATE AMINOTRANSFERASE INCREASED [None]
  - ALANINE AMINOTRANSFERASE INCREASED [None]
  - TOXIC SKIN ERUPTION [None]
